FAERS Safety Report 12082428 (Version 1)
Quarter: 2016Q1

REPORT INFORMATION
  Report Type: Other
  Country: US (occurrence: US)
  Receive Date: 20160217
  Receipt Date: 20160217
  Transmission Date: 20160526
  Serious: No
  Sender: FDA-Public Use
  Company Number: US-JUBILANT GENERICS LIMITED-1047930

PATIENT
  Sex: Female

DRUGS (3)
  1. TRINTELLIX [Suspect]
     Active Substance: VORTIOXETINE HYDROBROMIDE
  2. NICOTINE INHALER [Suspect]
     Active Substance: NICOTINE
  3. VALSARTAN. [Suspect]
     Active Substance: VALSARTAN

REACTIONS (4)
  - Drug interaction [Unknown]
  - Blood pressure decreased [Recovering/Resolving]
  - Paraesthesia [Unknown]
  - Pain [Unknown]

NARRATIVE: CASE EVENT DATE: 20151207
